FAERS Safety Report 13881952 (Version 1)
Quarter: 2017Q3

REPORT INFORMATION
  Report Type: Report from Study
  Country: DE (occurrence: DE)
  Receive Date: 20170818
  Receipt Date: 20170818
  Transmission Date: 20171127
  Serious: Yes (Hospitalization, Other)
  Sender: FDA-Public Use
  Company Number: DE-ACCORD-057148

PATIENT
  Age: 68 Year
  Sex: Female

DRUGS (5)
  1. DOXORUBICIN [Suspect]
     Active Substance: DOXORUBICIN
     Indication: DUCTAL ADENOCARCINOMA OF PANCREAS
     Dosage: 1ST EPIPAC LOW-DOSE 1.5 MG/M^2 BODY SURFACE
     Route: 033
  2. OXALIPLATIN. [Suspect]
     Active Substance: OXALIPLATIN
     Indication: DUCTAL ADENOCARCINOMA OF PANCREAS
  3. GEMCITABINE/GEMCITABINE HYDROCHLORIDE [Suspect]
     Active Substance: GEMCITABINE\GEMCITABINE HYDROCHLORIDE
     Indication: DUCTAL ADENOCARCINOMA OF PANCREAS
     Dosage: 6 CYCLES LATER WITH INN-PACLITAXEL
  4. CISPLATIN. [Suspect]
     Active Substance: CISPLATIN
     Indication: DUCTAL ADENOCARCINOMA OF PANCREAS
     Dosage: 1ST EPIPAC WITH LOW-DOSE 7.5 MG/M^2 BODY SURFACE
     Route: 033
  5. INN-PACLITAXEL [Suspect]
     Active Substance: PACLITAXEL
     Indication: DUCTAL ADENOCARCINOMA OF PANCREAS
     Dosage: 6 CYCLES WITH GEMCITABINE

REACTIONS (5)
  - Hydronephrosis [Unknown]
  - Pneumonia [Unknown]
  - Off label use [Unknown]
  - Systemic inflammatory response syndrome [Unknown]
  - Abdominal pain [Unknown]
